FAERS Safety Report 4687000-1 (Version None)
Quarter: 2005Q2

REPORT INFORMATION
  Report Type: 
  Country: None (occurrence: None)
  Receive Date: 20050606
  Receipt Date: 20050523
  Transmission Date: 20051028
  Serious: Yes (Other)
  Sender: FDA-Public Use
  Company Number: 2005060831

PATIENT
  Age: 48 Year
  Sex: Female

DRUGS (3)
  1. BEXTRA [Suspect]
     Indication: POSTOPERATIVE CARE
     Dosage: (3 IN 1 D), ORAL
     Route: 048
     Dates: start: 20050114, end: 20050121
  2. KEFLEX [Suspect]
     Indication: ILL-DEFINED DISORDER
     Dates: start: 20050101, end: 20050101
  3. ENALAPRIL MALEATE W/HYDROCHLOROTIAZIDE (ENALAPRIL MALEATE, HYDROCHLORO [Concomitant]

REACTIONS (6)
  - ACNE [None]
  - ACNE PUSTULAR [None]
  - DERMATITIS [None]
  - INFECTION [None]
  - INFLAMMATION [None]
  - PURULENT DISCHARGE [None]
